FAERS Safety Report 10154199 (Version 3)
Quarter: 2014Q2

REPORT INFORMATION
  Report Type: Spontaneous
  Country: US (occurrence: US)
  Receive Date: 20140506
  Receipt Date: 20140630
  Transmission Date: 20141212
  Serious: No
  Sender: FDA-Public Use
  Company Number: US-PFIZER INC-2014120651

PATIENT
  Age: 55 Year
  Sex: Male
  Weight: 106 kg

DRUGS (10)
  1. LYRICA [Suspect]
     Indication: NERVE INJURY
     Dosage: 50 MG, 3X/DAY
     Dates: start: 2014
  2. LYRICA [Suspect]
     Indication: BURNING SENSATION
     Dosage: 600 MG, 2X/DAY (100MG X 6)
     Dates: start: 2014
  3. LYRICA [Suspect]
     Indication: NEUROPATHY PERIPHERAL
  4. VELCADE [Suspect]
     Indication: MANTLE CELL LYMPHOMA
     Dosage: UNK
  5. FENTANYL [Concomitant]
     Indication: PAIN
     Dosage: 50 MCG/HOUR, EVERY 3 DAYS
  6. ZOFRAN [Concomitant]
     Indication: VOMITING
     Dosage: 8 MG, 2X/DAY
  7. ZOFRAN [Concomitant]
     Indication: NAUSEA
  8. OXYCODONE/PARACETAMOL [Concomitant]
     Indication: PAIN
     Dosage: [OXYCODONE 10MG]/[ACETAMINOPHEN 325MG], THREE TO FOUR TIMES A DAY
  9. VALACICLOVIR HYDROCHLORIDE [Concomitant]
     Dosage: 500 MG, DAILY
  10. FLUOXETINE HYDROCHLORIDE [Concomitant]
     Dosage: 20 MG, DAILY

REACTIONS (5)
  - Burning sensation [Unknown]
  - Insomnia [Unknown]
  - Restlessness [Unknown]
  - Pain [Unknown]
  - Drug ineffective [Unknown]
